FAERS Safety Report 8069035-4 (Version None)
Quarter: 2012Q1

REPORT INFORMATION
  Report Type: 
  Country: None (occurrence: None)
  Receive Date: 20120125
  Receipt Date: 20120117
  Transmission Date: 20120608
  Serious: Yes (Hospitalization)
  Sender: FDA-Public Use
  Company Number: US-GENZYME-FABR-1002330

PATIENT
  Sex: Male
  Weight: 50 kg

DRUGS (2)
  1. FABRAZYME [Suspect]
     Indication: FABRY'S DISEASE
     Dosage: 50 MG, Q4W
     Route: 042
  2. FABRAZYME [Suspect]
     Dosage: 100 MG, Q2W
     Route: 042
     Dates: start: 20040101

REACTIONS (2)
  - GASTROINTESTINAL DISORDER [None]
  - DYSPNOEA [None]
